FAERS Safety Report 14982263 (Version 1)
Quarter: 2018Q2

REPORT INFORMATION
  Report Type: Spontaneous
  Country: US (occurrence: US)
  Receive Date: 20180515
  Receipt Date: 20180515
  Transmission Date: 20180711
  Serious: No
  Sender: FDA-Public Use
  Company Number: None

PATIENT
  Age: 81 Year
  Sex: Female
  Weight: 44.45 kg

DRUGS (11)
  1. ALENDRONATE 70MG [Suspect]
     Active Substance: ALENDRONATE SODIUM
     Indication: OSTEOPOROSIS
     Dosage: ?          QUANTITY:1 DF DOSAGE FORM;?
     Route: 048
     Dates: start: 201808
  2. DILTIAFEM [Concomitant]
  3. OMEPRAZOLE. [Concomitant]
     Active Substance: OMEPRAZOLE
  4. TIMOLOL/DORZOLAMIDE [Concomitant]
     Active Substance: DORZOLAMIDE\TIMOLOL
  5. TRANXENE [Concomitant]
     Active Substance: CLORAZEPATE DIPOTASSIUM
  6. BABY ASPRIN [Concomitant]
     Active Substance: ASPIRIN
  7. PROBIOTIC [Concomitant]
     Active Substance: PROBIOTICS NOS
  8. LANAPRIST [Concomitant]
  9. VIT-C [Concomitant]
  10. CALCIUM [Concomitant]
     Active Substance: CALCIUM
  11. ARED2 [Concomitant]

REACTIONS (8)
  - Vision blurred [None]
  - Dysphagia [None]
  - Tooth disorder [None]
  - Feeling abnormal [None]
  - Alopecia [None]
  - Fatigue [None]
  - Quality of life decreased [None]
  - Dizziness [None]

NARRATIVE: CASE EVENT DATE: 20180101
